FAERS Safety Report 19468597 (Version 1)
Quarter: 2021Q2

REPORT INFORMATION
  Report Type: Other
  Country: JP (occurrence: JP)
  Receive Date: 20210628
  Receipt Date: 20210628
  Transmission Date: 20210717
  Serious: Yes (Hospitalization, Disabling)
  Sender: FDA-Public Use
  Company Number: JP-NOSTRUM LABORATORIES, INC.-2113229

PATIENT
  Age: 19 Year
  Sex: Male

DRUGS (1)
  1. CILOSTAZOL. [Suspect]
     Active Substance: CILOSTAZOL
     Indication: ENTERITIS
     Route: 048

REACTIONS (2)
  - Prinzmetal angina [Recovered/Resolved with Sequelae]
  - Ventricular hypokinesia [Recovered/Resolved with Sequelae]
